FAERS Safety Report 8241864-3 (Version None)
Quarter: 2012Q1

REPORT INFORMATION
  Report Type: 
  Country: None (occurrence: None)
  Receive Date: 20120328
  Receipt Date: 20120319
  Transmission Date: 20120608
  Serious: Yes (Hospitalization, Disabling, Other)
  Sender: FDA-Public Use
  Company Number: US-ASTRAZENECA-2012SE18869

PATIENT
  Age: 55 Year
  Sex: Female

DRUGS (2)
  1. TOPROL-XL [Suspect]
     Route: 048
     Dates: start: 20060401
  2. TOPROL-XL [Suspect]
     Indication: BLOOD PRESSURE
     Route: 048
     Dates: start: 20060401

REACTIONS (22)
  - TREMOR [None]
  - HEART RATE DECREASED [None]
  - SINUS BRADYCARDIA [None]
  - HYPOPNOEA [None]
  - HALLUCINATION, AUDITORY [None]
  - VISUAL IMPAIRMENT [None]
  - ABASIA [None]
  - OPTIC NERVE INFARCTION [None]
  - BREAST OEDEMA [None]
  - METABOLIC SYNDROME [None]
  - HAEMORRHAGE [None]
  - ABNORMAL SENSATION IN EYE [None]
  - CARDIOVASCULAR DISORDER [None]
  - HYPERSOMNIA [None]
  - BLOOD PRESSURE FLUCTUATION [None]
  - PAIN IN EXTREMITY [None]
  - VASOCONSTRICTION [None]
  - PALPITATIONS [None]
  - GASTRITIS [None]
  - HYPOAESTHESIA [None]
  - HEPATIC STEATOSIS [None]
  - ELECTROCARDIOGRAM T WAVE ABNORMAL [None]
